FAERS Safety Report 5044922-X (Version None)
Quarter: 2006Q2

REPORT INFORMATION
  Report Type: 
  Country: None (occurrence: None)
  Receive Date: 20060601
  Receipt Date: 20060410
  Transmission Date: 20061013
  Serious: No
  Sender: FDA-Public Use
  Company Number: 2006-BP-02918BP

PATIENT
  Age: 40 Year
  Sex: Female
  Weight: 60.78 kg

DRUGS (5)
  1. SPIRIVA [Suspect]
     Indication: PULMONARY FIBROSIS
     Dosage: 18 MCG(18 MCG) , IH
     Route: 055
     Dates: start: 20050325
  2. LEVOTHROID (LEVOHYOXINE) [Concomitant]
  3. ALBUTEROL [Concomitant]
  4. PRILOSEC [Concomitant]
  5. ADVAIR DISKUS 100/50 [Concomitant]

REACTIONS (2)
  - DRUG INEFFECTIVE [None]
  - FATIGUE [None]
